FAERS Safety Report 4630485-7 (Version None)
Quarter: 2005Q2

REPORT INFORMATION
  Report Type: 
  Country: None (occurrence: None)
  Receive Date: 20050406
  Receipt Date: 20050318
  Transmission Date: 20051028
  Serious: Yes (Hospitalization, Other)
  Sender: FDA-Public Use
  Company Number: USA030538381

PATIENT
  Age: 65 Year
  Sex: Female
  Weight: 76 kg

DRUGS (11)
  1. FORTEO [Suspect]
     Indication: OSTEOPOROSIS
     Dosage: 20 UG DAY
     Dates: start: 20030305
  2. FOSAMAX [Concomitant]
  3. CALCIUM GLUCONATE [Concomitant]
  4. VITAMIN E [Concomitant]
  5. BETANOL (METIPRANOLOL) [Concomitant]
  6. VITAMINS [Concomitant]
  7. LUTEIN [Concomitant]
  8. VITAMIN B COMPLEX CAP [Concomitant]
  9. VITAMIN D [Concomitant]
  10. GLUCOSAMINE [Concomitant]
  11. CALCIUM CITRATE WITH VITAMIN D [Concomitant]

REACTIONS (15)
  - ANAEMIA [None]
  - BILIARY CIRRHOSIS [None]
  - FALL [None]
  - FATIGUE [None]
  - FEELING ABNORMAL [None]
  - FEMUR FRACTURE [None]
  - INTRAOCULAR PRESSURE INCREASED [None]
  - LIVER DISORDER [None]
  - MALAISE [None]
  - OXYGEN SATURATION DECREASED [None]
  - PARAESTHESIA [None]
  - PYREXIA [None]
  - THROAT IRRITATION [None]
  - ULCER [None]
  - WEIGHT DECREASED [None]
